FAERS Safety Report 8912762 (Version 2)
Quarter: 2012Q4

REPORT INFORMATION
  Report Type: 
  Country: FR (occurrence: FR)
  Receive Date: 20121116
  Receipt Date: 20121120
  Transmission Date: 20130627
  Serious: Yes (Other)
  Sender: FDA-Public Use
  Company Number: FR-ABBOTT-12P-056-1007771-00

PATIENT
  Age: 29 Year
  Sex: Female

DRUGS (2)
  1. UTROGESTAN [Suspect]
     Indication: MENSTRUAL DISORDER
     Dosage: Unique administration
     Route: 048
     Dates: start: 20121110, end: 20121110
  2. DUPHASTON [Suspect]
     Indication: MENSTRUAL DISORDER
     Dosage: Unique administration
     Route: 048
     Dates: start: 20121109, end: 20121109

REACTIONS (9)
  - Dermatitis allergic [Recovered/Resolved]
  - Rash macular [Recovered/Resolved]
  - Face oedema [Recovered/Resolved]
  - Oedema peripheral [Recovered/Resolved]
  - Adverse drug reaction [Recovered/Resolved]
  - Dermatitis allergic [Recovered/Resolved]
  - Rash macular [Recovered/Resolved]
  - Face oedema [Recovered/Resolved]
  - Oedema peripheral [Recovered/Resolved]
